FAERS Safety Report 4531970-9 (Version None)
Quarter: 2004Q4

REPORT INFORMATION
  Report Type: 
  Country: None (occurrence: None)
  Receive Date: 20041217
  Receipt Date: 20041206
  Transmission Date: 20050328
  Serious: Yes (Hospitalization)
  Sender: FDA-Public Use
  Company Number: 210109

PATIENT
  Age: 71 Year
  Sex: Female

DRUGS (1)
  1. RITUXAN [Suspect]
     Indication: NON-HODGKIN'S LYMPHOMA
     Dosage: 1/WEEK, INTRAVENOUS
     Route: 042

REACTIONS (4)
  - DYSPHAGIA [None]
  - MUSCLE ATROPHY [None]
  - STEVENS-JOHNSON SYNDROME [None]
  - WEIGHT DECREASED [None]
